FAERS Safety Report 14951279 (Version 1)
Quarter: 2018Q2

REPORT INFORMATION
  Report Type: Spontaneous
  Country: US (occurrence: US)
  Receive Date: 20180530
  Receipt Date: 20180530
  Transmission Date: 20180711
  Serious: Yes (Hospitalization, Other)
  Sender: FDA-Public Use
  Company Number: US-VANDA PHARMACEUTICALS, INC-2018TASUS002266

PATIENT
  Sex: Female

DRUGS (1)
  1. HETLIOZ [Suspect]
     Active Substance: TASIMELTEON
     Indication: CIRCADIAN RHYTHM SLEEP DISORDER
     Dosage: ONE CAPSULE EVERY 24 HOURS ONE HOUR BEFORE BEDTIME
     Dates: start: 201711

REACTIONS (4)
  - Hallucination [Unknown]
  - Vision blurred [Unknown]
  - Overdose [Unknown]
  - Retinal vascular occlusion [Unknown]
